FAERS Safety Report 9641352 (Version 3)
Quarter: 2014Q1

REPORT INFORMATION
  Report Type: Spontaneous
  Country: IT (occurrence: IT)
  Receive Date: 20131023
  Receipt Date: 20140110
  Transmission Date: 20141002
  Serious: Yes (Hospitalization)
  Sender: FDA-Public Use
  Company Number: IT-TEVA-438055ISR

PATIENT
  Age: 51 Year
  Sex: Male
  Weight: 85 kg

DRUGS (8)
  1. VINCRISTINA TEVA ITALIA [Suspect]
     Indication: NON-HODGKIN^S LYMPHOMA
     Dosage: 2MG CYCLICAL
     Route: 042
     Dates: start: 20130828, end: 20130828
  2. MABTHERA [Suspect]
     Indication: NON-HODGKIN^S LYMPHOMA
     Dosage: 37.5 MG CYCLICAL
     Route: 042
     Dates: start: 20130827, end: 20130827
  3. ADRIBLASTINA [Suspect]
     Indication: NON-HODGKIN^S LYMPHOMA
     Dosage: 100MG CYCLICAL
     Route: 042
     Dates: start: 20130828, end: 20130828
  4. ENDOXAN BAXTER [Suspect]
     Indication: NON-HODGKIN^S LYMPHOMA
     Dosage: 1500MG CYCLICAL; POWDER FOR SOLUTION FOR INJECTION
     Route: 042
     Dates: start: 20130828, end: 20130828
  5. EPIVIR 300MG [Concomitant]
     Indication: HIV INFECTION
     Dosage: 300 MILLIGRAM DAILY;
     Route: 048
     Dates: start: 20121111, end: 20130905
  6. ISENTRESS 400MG [Concomitant]
     Indication: HIV INFECTION
     Dosage: 800 MILLIGRAM DAILY;
     Route: 048
     Dates: start: 20121111, end: 20130905
  7. PREZISTA 400MG [Concomitant]
     Indication: HIV INFECTION
     Dosage: 400 MILLIGRAM DAILY;
     Route: 048
     Dates: start: 20121111, end: 20130905
  8. NORVIR 100MG [Concomitant]
     Indication: HIV INFECTION
     Dosage: 100 MILLIGRAM DAILY;
     Route: 048
     Dates: start: 20121111, end: 20130905

REACTIONS (5)
  - Febrile neutropenia [Recovering/Resolving]
  - Hyperbilirubinaemia [Recovering/Resolving]
  - Thrombocytopenia [Recovering/Resolving]
  - Large intestinal obstruction [Recovering/Resolving]
  - Encephalopathy [Recovered/Resolved]
